FAERS Safety Report 7962343-4 (Version None)
Quarter: 2011Q4

REPORT INFORMATION
  Report Type: 
  Country: None (occurrence: None)
  Receive Date: 20111207
  Receipt Date: 20111201
  Transmission Date: 20120403
  Serious: Yes (Hospitalization, Other)
  Sender: FDA-Public Use
  Company Number: US-MERCK-1101USA01552

PATIENT
  Age: 63 Year
  Sex: Female
  Weight: 80 kg

DRUGS (7)
  1. FOSAMAX [Suspect]
     Indication: OSTEOPENIA
     Route: 048
     Dates: end: 20100115
  2. SYNTHROID [Concomitant]
     Indication: HYPOTHYROIDISM
     Route: 065
     Dates: start: 19920101, end: 20101201
  3. FOSAMAX [Suspect]
     Route: 048
     Dates: start: 19950101
  4. CALCIUM (UNSPECIFIED) [Concomitant]
     Route: 065
     Dates: start: 19950101
  5. FOSAMAX [Suspect]
     Indication: OSTEOPOROSIS
     Route: 048
     Dates: end: 20100115
  6. FOSAMAX [Suspect]
     Route: 048
     Dates: start: 19950101
  7. ALENDRONATE SODIUM [Suspect]
     Indication: OSTEOPOROSIS
     Route: 048
     Dates: start: 20080209, end: 20100821

REACTIONS (54)
  - LOWER LIMB FRACTURE [None]
  - DIVERTICULUM INTESTINAL [None]
  - UTERINE DISORDER [None]
  - HYPERSOMNIA [None]
  - PATELLOFEMORAL PAIN SYNDROME [None]
  - FALL [None]
  - SKELETAL INJURY [None]
  - ARTERIOSCLEROSIS [None]
  - HIATUS HERNIA [None]
  - ARTHRITIS [None]
  - SCOLIOSIS [None]
  - UPPER-AIRWAY COUGH SYNDROME [None]
  - INFLAMMATION [None]
  - APPENDIX DISORDER [None]
  - THORACIC VERTEBRAL FRACTURE [None]
  - OSTEOARTHRITIS [None]
  - HYPERPHAGIA [None]
  - GASTROOESOPHAGEAL REFLUX DISEASE [None]
  - TOOTH FRACTURE [None]
  - SPINAL COLUMN STENOSIS [None]
  - CONTUSION [None]
  - CERVICAL SPINAL STENOSIS [None]
  - SPINAL COMPRESSION FRACTURE [None]
  - SKIN LESION [None]
  - POLYP [None]
  - PERIODONTITIS [None]
  - OESOPHAGITIS [None]
  - TENDON DISORDER [None]
  - SPINAL OSTEOARTHRITIS [None]
  - CHRONIC OBSTRUCTIVE PULMONARY DISEASE [None]
  - ASTHENIA [None]
  - DYSPEPSIA [None]
  - LUMBAR SPINAL STENOSIS [None]
  - HAEMORRHOIDS [None]
  - DRY MOUTH [None]
  - BACK DISORDER [None]
  - OROPHARYNGEAL PAIN [None]
  - LOW TURNOVER OSTEOPATHY [None]
  - JOINT INJURY [None]
  - DENTAL CARIES [None]
  - OBESITY [None]
  - HELICOBACTER INFECTION [None]
  - FAT TISSUE INCREASED [None]
  - PAIN [None]
  - WEIGHT INCREASED [None]
  - VARICOSE VEIN [None]
  - FACET JOINT SYNDROME [None]
  - FEMUR FRACTURE [None]
  - ROTATOR CUFF SYNDROME [None]
  - TONSILLAR DISORDER [None]
  - EXCORIATION [None]
  - MENISCUS LESION [None]
  - ARTHROPATHY [None]
  - COMPRESSION FRACTURE [None]
